FAERS Safety Report 13319486 (Version 1)
Quarter: 2017Q1

REPORT INFORMATION
  Report Type: Spontaneous
  Country: ES (occurrence: None)
  Receive Date: 20170309
  Receipt Date: 20170309
  Transmission Date: 20170428
  Serious: No
  Sender: FDA-Public Use
  Company Number: ES-009507513-1611ESP000705

PATIENT
  Age: 55 Year
  Sex: Female

DRUGS (2)
  1. BCG VACCINE [Suspect]
     Active Substance: BCG VACCINE
     Indication: BLADDER CANCER
     Dosage: 54 MG REDUCED IN 50 ML OF SODIUM CHLORIDE SOLUTION (0.9%)
     Route: 043
  2. MK-0000 [Suspect]
     Active Substance: INVESTIGATIONAL PRODUCT

REACTIONS (2)
  - Hepatic enzyme increased [None]
  - Disseminated Bacillus Calmette-Guerin infection [None]
